FAERS Safety Report 17551653 (Version 2)
Quarter: 2020Q3

REPORT INFORMATION
  Report Type: Spontaneous
  Country: JP (occurrence: JP)
  Receive Date: 20200317
  Receipt Date: 20200702
  Transmission Date: 20201102
  Serious: Yes (Hospitalization)
  Sender: FDA-Public Use
  Company Number: JP-AMGEN-JPNSP2020042970

PATIENT
  Age: 51 Year
  Sex: Female

DRUGS (6)
  1. ATOZET COMBINATION HD [Concomitant]
     Dosage: UNK
  2. REPATHA [Suspect]
     Active Substance: EVOLOCUMAB
     Indication: TYPE IIA HYPERLIPIDAEMIA
     Dosage: 420 MILLIGRAM, QMO
     Route: 058
     Dates: start: 20190625
  3. LOTRIGA [Concomitant]
     Active Substance: OMEGA-3-ACID ETHYL ESTERS
     Dosage: 2 GRAM, QD
  4. AZILVA [Concomitant]
     Active Substance: AZILSARTAN KAMEDOXOMIL
  5. EFIENT [Concomitant]
     Active Substance: PRASUGREL HYDROCHLORIDE
  6. AZELNIDIPINE [Concomitant]
     Active Substance: AZELNIDIPINE

REACTIONS (1)
  - Dyspnoea [Unknown]

NARRATIVE: CASE EVENT DATE: 20200305
